FAERS Safety Report 20462724 (Version 1)
Quarter: 2022Q1

REPORT INFORMATION
  Report Type: Spontaneous
  Country: US (occurrence: US)
  Receive Date: 20220211
  Receipt Date: 20220211
  Transmission Date: 20220423
  Serious: No
  Sender: FDA-Public Use
  Company Number: US-PERRIGO-21US024696

PATIENT
  Sex: Female
  Weight: 68.027 kg

DRUGS (1)
  1. KETOCONAZOLE [Suspect]
     Active Substance: KETOCONAZOLE
     Indication: Androgenetic alopecia
     Dosage: UNKNOWN, TWICE WEEKLY
     Route: 061
     Dates: start: 2020

REACTIONS (2)
  - Drug effective for unapproved indication [Not Recovered/Not Resolved]
  - Hair colour changes [Not Recovered/Not Resolved]

NARRATIVE: CASE EVENT DATE: 20200101
